FAERS Safety Report 8802511 (Version 2)
Quarter: 2013Q1

REPORT INFORMATION
  Report Type: Spontaneous
  Country: US (occurrence: US)
  Receive Date: 20120921
  Receipt Date: 20130118
  Transmission Date: 20140127
  Serious: No
  Sender: FDA-Public Use
  Company Number: US-009507513-1209USA007481

PATIENT
  Age: 48 Year
  Sex: Female

DRUGS (2)
  1. ASMANEX TWISTHALER [Suspect]
     Indication: ASTHMA
     Dosage: 1 DF, BID
     Route: 048
     Dates: start: 201009, end: 20120903
  2. ASMANEX TWISTHALER [Suspect]
     Dosage: 1 DF, BID
     Route: 048
     Dates: start: 201209

REACTIONS (4)
  - Dyspnoea [Recovered/Resolved]
  - Treatment noncompliance [Unknown]
  - Drug dose omission [Unknown]
  - Product quality issue [Unknown]
